FAERS Safety Report 25307853 (Version 4)
Quarter: 2025Q2

REPORT INFORMATION
  Report Type: Spontaneous
  Country: JP (occurrence: JP)
  Receive Date: 20250513
  Receipt Date: 20250528
  Transmission Date: 20250716
  Serious: Yes (Life-Threatening, Hospitalization, Other)
  Sender: PFIZER
  Company Number: JP-PFIZER INC-PV202500056690

PATIENT
  Age: 79 Year
  Sex: Female

DRUGS (10)
  1. HYDROCORTISONE [Suspect]
     Active Substance: HYDROCORTISONE
     Indication: Polymyositis
  2. HYDROCORTISONE [Suspect]
     Active Substance: HYDROCORTISONE
     Indication: Pneumonia bacterial
  3. METHYLPREDNISOLONE [Concomitant]
     Active Substance: METHYLPREDNISOLONE
     Indication: Interstitial lung disease
  4. METHYLPREDNISOLONE [Concomitant]
     Active Substance: METHYLPREDNISOLONE
     Indication: Condition aggravated
  5. BISOPROLOL [Concomitant]
     Active Substance: BISOPROLOL
     Indication: Cardiogenic shock
  6. CIFENLINE [Concomitant]
     Active Substance: CIFENLINE
     Indication: Cardiogenic shock
     Dosage: 100 MG, DAILY
  7. METHOTREXATE [Concomitant]
     Active Substance: METHOTREXATE
     Indication: Polymyositis
  8. METHOTREXATE [Concomitant]
     Active Substance: METHOTREXATE
     Indication: Interstitial lung disease
  9. PREDNISOLONE [Concomitant]
     Active Substance: PREDNISOLONE
     Indication: Polymyositis
  10. PREDNISOLONE [Concomitant]
     Active Substance: PREDNISOLONE
     Indication: Interstitial lung disease

REACTIONS (1)
  - Drug ineffective [Unknown]
